FAERS Safety Report 12498933 (Version 1)
Quarter: 2016Q2

REPORT INFORMATION
  Report Type: Spontaneous
  Country: US (occurrence: US)
  Receive Date: 20160627
  Receipt Date: 20160627
  Transmission Date: 20160815
  Serious: No
  Sender: FDA-Public Use
  Company Number: US-TEVA-651093USA

PATIENT
  Sex: Female

DRUGS (1)
  1. ANASTROZOLE. [Suspect]
     Active Substance: ANASTROZOLE
     Indication: BREAST CANCER
     Dosage: 1 MILLIGRAM DAILY;
     Route: 065

REACTIONS (4)
  - Tooth loss [Unknown]
  - Tooth infection [Not Recovered/Not Resolved]
  - Dry mouth [Not Recovered/Not Resolved]
  - Dental caries [Not Recovered/Not Resolved]

NARRATIVE: CASE EVENT DATE: 2015
